FAERS Safety Report 10013543 (Version 16)
Quarter: 2016Q2

REPORT INFORMATION
  Report Type: Report from Study
  Country: PA (occurrence: PA)
  Receive Date: 20140315
  Receipt Date: 20160622
  Transmission Date: 20160815
  Serious: Yes (Hospitalization)
  Sender: FDA-Public Use
  Company Number: PA-ROCHE-1362432

PATIENT
  Age: 44 Year
  Sex: Female
  Weight: 62 kg

DRUGS (14)
  1. OBINUTUZUMAB [Suspect]
     Active Substance: OBINUTUZUMAB
     Indication: DIFFUSE LARGE B-CELL LYMPHOMA
     Dosage: MOST RECENT DOSE 250 ML(DOSE CONCENTRATION :4 MG/ML) PRIOR TO THE EVENT ON 06/MAR/2014?MOST RECENT D
     Route: 042
     Dates: start: 20140227
  2. ENOXAPARIN [Concomitant]
     Active Substance: ENOXAPARIN
     Indication: PROPHYLAXIS
     Route: 065
     Dates: start: 20140226, end: 20140326
  3. LACTULOSE. [Concomitant]
     Active Substance: LACTULOSE
     Indication: CONSTIPATION
     Route: 065
     Dates: start: 20140513, end: 20140514
  4. VINCRISTINE [Suspect]
     Active Substance: VINCRISTINE
     Indication: DIFFUSE LARGE B-CELL LYMPHOMA
     Dosage: MOST RECENT DOSE( 2 MG) PRIOR TO THE EVENT ON 27/FEB/2014.?DATE OF MOST RECENT DOSE PRIOR TO NEUTROP
     Route: 050
     Dates: start: 20140227
  5. ALLOPURINOL. [Concomitant]
     Active Substance: ALLOPURINOL
     Indication: PROPHYLAXIS
     Route: 065
     Dates: start: 20140226, end: 20140304
  6. HEPARIN [Concomitant]
     Active Substance: HEPARIN SODIUM
     Indication: DEEP VEIN THROMBOSIS
     Route: 065
     Dates: start: 20140226, end: 20140326
  7. MYCOSTATIN [Concomitant]
     Active Substance: NYSTATIN
     Indication: MUCOSAL INFLAMMATION
     Route: 065
     Dates: start: 20140308, end: 201403
  8. DIPHENHYDRAMINE. [Concomitant]
     Active Substance: DIPHENHYDRAMINE
     Indication: MUCOSAL INFLAMMATION
     Route: 065
     Dates: start: 20140308, end: 201403
  9. MAGNESIUM HYDROXIDE. [Concomitant]
     Active Substance: MAGNESIUM HYDROXIDE
     Indication: MUCOSAL INFLAMMATION
     Route: 065
     Dates: start: 20140308, end: 201403
  10. ONICIT [Concomitant]
     Active Substance: PALONOSETRON HYDROCHLORIDE
     Indication: PREMEDICATION
     Route: 065
     Dates: start: 20140227
  11. PREDNISONE. [Suspect]
     Active Substance: PREDNISONE
     Indication: DIFFUSE LARGE B-CELL LYMPHOMA
     Dosage: MOST RECENT DOSE (100 MG) PRIOR TO THE EVENT ON 03/MAR/2014?DATE OF MOST RECENT DOSE PRIOR TO FEBRIL
     Route: 048
     Dates: start: 20140227
  12. CYCLOPHOSPHAMIDE. [Suspect]
     Active Substance: CYCLOPHOSPHAMIDE
     Indication: DIFFUSE LARGE B-CELL LYMPHOMA
     Dosage: DATE OF MOST RECENT DOSE PRIOR TO NEUTROPENIA FEBRILE: 11/APR/2014. (1230 MG)?MOST RECENT DOSE PRIOR
     Route: 042
     Dates: start: 20140227
  13. DOXORUBICIN [Suspect]
     Active Substance: DOXORUBICIN
     Indication: DIFFUSE LARGE B-CELL LYMPHOMA
     Dosage: MOST RECENT DOSE (82 MG)PRIOR TO THE EVENT ON 27/FEB/2014.?DATE OF MOST RECENT DOSE PRIOR TO NEUTROP
     Route: 042
     Dates: start: 20140227
  14. HYDROCORTISONE. [Concomitant]
     Active Substance: HYDROCORTISONE
     Route: 065
     Dates: start: 20140513, end: 20140514

REACTIONS (3)
  - Febrile neutropenia [Recovered/Resolved]
  - Febrile neutropenia [Recovered/Resolved]
  - Febrile neutropenia [Recovered/Resolved]

NARRATIVE: CASE EVENT DATE: 20140307
